FAERS Safety Report 7112748-9 (Version None)
Quarter: 2010Q4

REPORT INFORMATION
  Report Type: 
  Country: None (occurrence: None)
  Receive Date: 20101119
  Receipt Date: 20101117
  Transmission Date: 20110411
  Serious: Yes (Other)
  Sender: FDA-Public Use
  Company Number: CY-BRISTOL-MYERS SQUIBB COMPANY-15376858

PATIENT
  Age: 65 Year
  Sex: Female

DRUGS (2)
  1. QUESTRAN LIGHT [Suspect]
     Indication: GASTROINTESTINAL DISORDER
     Dosage: STARTED IN BEG OF 2007, THEN STOPPED; RESTARTED 5MG (18 MONTHS DURATION)
     Dates: start: 20070101
  2. QUESTRAN LIGHT [Suspect]
     Indication: BLOOD CHOLESTEROL ABNORMAL
     Dosage: STARTED IN BEG OF 2007, THEN STOPPED; RESTARTED 5MG (18 MONTHS DURATION)
     Dates: start: 20070101

REACTIONS (3)
  - AORTIC ANEURYSM [None]
  - DYSGEUSIA [None]
  - SARCOIDOSIS [None]
